FAERS Safety Report 4367010-4 (Version None)
Quarter: 2004Q2

REPORT INFORMATION
  Report Type: 
  Country: None (occurrence: None)
  Receive Date: 20040524
  Receipt Date: 20040509
  Transmission Date: 20050107
  Serious: Yes (Other)
  Sender: FDA-Public Use
  Company Number: 2004031287

PATIENT
  Sex: Male

DRUGS (4)
  1. VIAGRA [Suspect]
     Indication: ERECTILE DYSFUNCTION
     Dosage: ORAL
     Route: 048
  2. FUROSEMIDE [Concomitant]
  3. ALL OTHER THERAPEUTIC PRODUCTS (ALL OTHER  THERAPEUTIC PRODUCTS) [Concomitant]
  4. TESTERONE (TESTERONE) [Concomitant]

REACTIONS (5)
  - ARTHRITIS [None]
  - BODY HEIGHT DECREASED [None]
  - DRUG INEFFECTIVE [None]
  - EXOSTOSIS [None]
  - WEIGHT DECREASED [None]
